FAERS Safety Report 9064741 (Version 2)
Quarter: 2013Q2

REPORT INFORMATION
  Report Type: Report from Study
  Country: IT (occurrence: IT)
  Receive Date: 20130213
  Receipt Date: 20130419
  Transmission Date: 20140414
  Serious: Yes (Other)
  Sender: FDA-Public Use
  Company Number: IT-BRISTOL-MYERS SQUIBB COMPANY-17324104

PATIENT
  Age: 54 Year
  Sex: Male
  Weight: 70.6 kg

DRUGS (8)
  1. ALD518 [Suspect]
     Indication: STOMATITIS
     Dosage: 1DF=1ST DOSE.LAST DOSE(2ND DOSE)-18DEC12,IV
     Route: 042
     Dates: start: 20121127
  2. CISPLATIN [Suspect]
     Indication: HEAD AND NECK CANCER
     Dates: start: 20121128, end: 20121219
  3. BLINDED: PLACEBO [Suspect]
     Indication: STOMATITIS
     Dosage: 27NV12-27NV12:1ST DOSE?18DEC12-18DEC12:2ND DOSE
     Route: 042
     Dates: start: 20121127
  4. FENTANYL [Concomitant]
     Indication: PAIN
     Route: 062
     Dates: start: 20130107
  5. LANSOPRAZOLE [Concomitant]
     Indication: PROPHYLAXIS
     Route: 048
     Dates: start: 20121221
  6. MICONAZOLE [Concomitant]
     Indication: ORAL CANDIDIASIS
     Route: 048
     Dates: start: 20121218
  7. AMOXICILLIN [Concomitant]
     Indication: COUGH
     Route: 048
     Dates: start: 20130107
  8. FLUCONAZOLE [Concomitant]
     Indication: ORAL CANDIDIASIS
     Route: 048
     Dates: start: 20130107

REACTIONS (1)
  - Pneumonitis [Recovered/Resolved]
